FAERS Safety Report 5725022-X (Version None)
Quarter: 2008Q2

REPORT INFORMATION
  Report Type: 
  Country: None (occurrence: None)
  Receive Date: 20080501
  Receipt Date: 20080422
  Transmission Date: 20081010
  Serious: Yes (Other)
  Sender: FDA-Public Use
  Company Number: US-ELI_LILLY_AND_COMPANY-US200803001969

PATIENT
  Sex: Female
  Weight: 56.689 kg

DRUGS (2)
  1. GEMZAR [Suspect]
     Indication: OVARIAN CANCER RECURRENT
     Dosage: 800 MG/M2
     Dates: start: 20080101, end: 20080304
  2. CARBOPLATIN [Concomitant]
     Indication: OVARIAN CANCER RECURRENT
     Dosage: AUC 5
     Dates: end: 20080311

REACTIONS (3)
  - DYSARTHRIA [None]
  - DYSPHAGIA [None]
  - PHARYNGEAL DISORDER [None]
